FAERS Safety Report 5139573-2 (Version None)
Quarter: 2006Q4

REPORT INFORMATION
  Report Type: 
  Country: None (occurrence: None)
  Receive Date: 20061024
  Receipt Date: 20061011
  Transmission Date: 20070319
  Serious: Yes (Hospitalization)
  Sender: FDA-Public Use
  Company Number: 2006127199

PATIENT
  Age: 53 Year
  Sex: Female

DRUGS (5)
  1. ATARAX [Suspect]
     Dosage: 200 MG, ORAL
     Route: 048
     Dates: start: 20060309, end: 20060311
  2. LEPTICUR                      (TROPATEPINE HYDROCHLORIDE) [Suspect]
     Dosage: 1 DF, ORAL
     Route: 048
     Dates: start: 20060303
  3. CLONAZEPAM [Suspect]
     Dosage: 3 MG, ORAL
     Route: 048
     Dates: start: 20060309
  4. TERCIAN            (CYAMEMAZINE) [Suspect]
     Dosage: 200 MG, ORAL
     Route: 048
     Dates: start: 20060306, end: 20060311
  5. DEPAKOTE [Suspect]
     Dosage: 1000 MG, ORAL
     Route: 048
     Dates: start: 20060306, end: 20060311

REACTIONS (1)
  - CYTOLYTIC HEPATITIS [None]
